FAERS Safety Report 5305095-9 (Version None)
Quarter: 2007Q2

REPORT INFORMATION
  Report Type: 
  Country: None (occurrence: None)
  Receive Date: 20070417
  Receipt Date: 20070410
  Transmission Date: 20071010
  Serious: Yes (Hospitalization, Other)
  Sender: FDA-Public Use
  Company Number: 163-20785-06080950

PATIENT
  Age: 60 Year
  Sex: Male
  Weight: 86.1834 kg

DRUGS (10)
  1. THALOMID [Suspect]
     Indication: MULTIPLE MYELOMA
     Dosage: 40-100 MG, DAILY; ORAL, 50 MG, 1 IN 1 D; ORAL
     Route: 048
     Dates: start: 20050801, end: 20060101
  2. THALOMID [Suspect]
     Indication: MULTIPLE MYELOMA
     Dosage: 40-100 MG, DAILY; ORAL, 50 MG, 1 IN 1 D; ORAL
     Route: 048
     Dates: start: 20060201, end: 20060801
  3. DECADRON [Suspect]
     Indication: MULTIPLE MYELOMA
     Dosage: 40 MG, ONCE A WEEK, UNK,
     Dates: start: 20050801, end: 20050101
  4. CALCIUM (CALCIUM) [Concomitant]
  5. LOTREL [Concomitant]
  6. ACYCLOVIR [Concomitant]
  7. BACTRIM DS [Concomitant]
  8. FOLIC ACID [Concomitant]
  9. MULTIVITAMIN [Concomitant]
  10. JUICE PLUS (JUICE PLUS) [Concomitant]

REACTIONS (9)
  - AMNESIA [None]
  - CONVULSION [None]
  - FATIGUE [None]
  - HYPOGLYCAEMIA [None]
  - LOSS OF CONSCIOUSNESS [None]
  - MEMORY IMPAIRMENT [None]
  - NEUROPATHY PERIPHERAL [None]
  - ROAD TRAFFIC ACCIDENT [None]
  - ROTATOR CUFF SYNDROME [None]
